FAERS Safety Report 9658105 (Version 1)
Quarter: 2013Q4

REPORT INFORMATION
  Report Type: Spontaneous
  Country: US (occurrence: US)
  Receive Date: 20131030
  Receipt Date: 20131030
  Transmission Date: 20140711
  Serious: No
  Sender: FDA-Public Use
  Company Number: US-009507513-1310USA012657

PATIENT
  Sex: Female

DRUGS (3)
  1. COZAAR [Suspect]
     Route: 048
  2. IRBESARTAN [Suspect]
  3. HYDROCHLOROTHIAZIDE [Suspect]

REACTIONS (1)
  - Blood pressure increased [Unknown]
